FAERS Safety Report 16120655 (Version 1)
Quarter: 2019Q1

REPORT INFORMATION
  Report Type: Spontaneous
  Country: PL (occurrence: PL)
  Receive Date: 20190327
  Receipt Date: 20190327
  Transmission Date: 20190418
  Serious: Yes (Other)
  Sender: FDA-Public Use
  Company Number: PL-ROCHE-2115222

PATIENT
  Age: 35 Year
  Sex: Female

DRUGS (6)
  1. PERJETA [Suspect]
     Active Substance: PERTUZUMAB
     Indication: BREAST CANCER METASTATIC
     Dosage: FIRST DOSE
     Route: 042
     Dates: start: 201608
  2. DOCETAXEL. [Suspect]
     Active Substance: DOCETAXEL
     Indication: BREAST CANCER METASTATIC
     Route: 065
     Dates: start: 201608
  3. HERCEPTIN [Suspect]
     Active Substance: TRASTUZUMAB
     Indication: INVASIVE DUCTAL BREAST CARCINOMA
     Dosage: NEXT DOSES
     Route: 042
  4. PERJETA [Suspect]
     Active Substance: PERTUZUMAB
     Indication: INVASIVE DUCTAL BREAST CARCINOMA
     Dosage: NEXT DOSES
     Route: 042
  5. DOCETAXEL. [Suspect]
     Active Substance: DOCETAXEL
     Indication: INVASIVE DUCTAL BREAST CARCINOMA
  6. HERCEPTIN [Suspect]
     Active Substance: TRASTUZUMAB
     Indication: BREAST CANCER METASTATIC
     Dosage: FIRST DOSE
     Route: 042
     Dates: start: 201608

REACTIONS (11)
  - Pruritus [Recovered/Resolved]
  - Metastases to liver [Unknown]
  - Ejection fraction decreased [Unknown]
  - Erythema [Unknown]
  - Hypoaesthesia [Unknown]
  - Pruritus [Recovered/Resolved]
  - Oedema peripheral [Unknown]
  - Polyneuropathy [Unknown]
  - Peripheral swelling [Unknown]
  - Metastases to lung [Unknown]
  - Hepatomegaly [Unknown]

NARRATIVE: CASE EVENT DATE: 201611
